FAERS Safety Report 23783130 (Version 2)
Quarter: 2024Q2

REPORT INFORMATION
  Report Type: Report from Study
  Country: TR (occurrence: TR)
  Receive Date: 20240425
  Receipt Date: 20240509
  Transmission Date: 20240716
  Serious: Yes (Other)
  Sender: FDA-Public Use
  Company Number: TR-ABBVIE-5733056

PATIENT
  Age: 69 Year
  Sex: Male
  Weight: 80 kg

DRUGS (6)
  1. CARBIDOPA\LEVODOPA [Suspect]
     Active Substance: CARBIDOPA\LEVODOPA
     Indication: Parkinson^s disease
     Dosage: MORNING DOSE (ML): 7.00 CONTINUOUS DOSE (ML): 1.90 EXTRA DOSE (ML): 1.00
     Route: 050
     Dates: start: 20240305
  2. CARBIDOPA\LEVODOPA [Suspect]
     Active Substance: CARBIDOPA\LEVODOPA
  3. Delix [Concomitant]
     Indication: Hypertension
     Route: 048
  4. ZESPIRA [Concomitant]
     Indication: Asthma
     Route: 048
  5. GABAPENTIN [Concomitant]
     Active Substance: GABAPENTIN
     Indication: Parkinson^s disease
     Dosage: 2400 MILLIGRAM
     Route: 048
  6. DOPADEX SR [Concomitant]
     Indication: Parkinson^s disease
     Dosage: 50/200
     Route: 048

REACTIONS (2)
  - Suicidal ideation [Recovered/Resolved]
  - Skin odour abnormal [Recovered/Resolved]

NARRATIVE: CASE EVENT DATE: 20240305
